FAERS Safety Report 17404597 (Version 5)
Quarter: 2020Q1

REPORT INFORMATION
  Report Type: Report from Study
  Country: US (occurrence: US)
  Receive Date: 20200211
  Receipt Date: 20200310
  Transmission Date: 20200409
  Serious: Yes (Life-Threatening, Hospitalization)
  Sender: FDA-Public Use
  Company Number: US-GILEAD-2020-0450329

PATIENT
  Age: 62 Year
  Sex: Female
  Weight: 78.4 kg

DRUGS (48)
  1. CYCLOPHOSPHAMIDE. [Suspect]
     Active Substance: CYCLOPHOSPHAMIDE
     Indication: NON-HODGKIN^S LYMPHOMA
     Route: 042
  2. ZOVIRAX [Concomitant]
     Active Substance: ACYCLOVIR
     Dosage: UNK
  3. CALCIUM GLUCONATE. [Concomitant]
     Active Substance: CALCIUM GLUCONATE
  4. ERYTHROMYCIN. [Concomitant]
     Active Substance: ERYTHROMYCIN
     Dosage: UNK
  5. PROTONIX [Concomitant]
     Active Substance: PANTOPRAZOLE SODIUM
     Dosage: UNK
  6. OXYGEN. [Concomitant]
     Active Substance: OXYGEN
  7. PROAIR HFA [Concomitant]
     Active Substance: ALBUTEROL SULFATE
     Dosage: UNK
  8. COLACE [Concomitant]
     Active Substance: DOCUSATE SODIUM
  9. PNEUMOVAX 23 [Concomitant]
     Active Substance: PNEUMOCOCCAL VACCINE, POLYVALENT 23
  10. DAKIN [SODIUM HYPOCHLORITE] [Concomitant]
     Active Substance: SODIUM HYPOCHLORITE
  11. CINNAMON BARK [Concomitant]
     Active Substance: CINNAMON\HERBALS
  12. PERCOCET [Concomitant]
     Active Substance: ACETAMINOPHEN\OXYCODONE HYDROCHLORIDE
  13. TYLENOL [Concomitant]
     Active Substance: ACETAMINOPHEN
  14. ASPIRIN [ACETYLSALICYLIC ACID] [Concomitant]
     Active Substance: ASPIRIN
  15. MORPHINE [Concomitant]
     Active Substance: MORPHINE
  16. PHENERGAN [Concomitant]
     Active Substance: PROMETHAZINE HYDROCHLORIDE
  17. ELIQUIS [Concomitant]
     Active Substance: APIXABAN
     Dosage: UNK
  18. ACCUPRIL [Concomitant]
     Active Substance: QUINAPRIL HYDROCHLORIDE
  19. FLUDARABINE [Suspect]
     Active Substance: FLUDARABINE PHOSPHATE
     Indication: NON-HODGKIN^S LYMPHOMA
     Route: 042
  20. ZOFRAN [Concomitant]
     Active Substance: ONDANSETRON HYDROCHLORIDE
  21. LOVENOX [Concomitant]
     Active Substance: ENOXAPARIN SODIUM
  22. GLUCOTROL [Concomitant]
     Active Substance: GLIPIZIDE
  23. NUCYNTA [Concomitant]
     Active Substance: TAPENTADOL HYDROCHLORIDE
  24. ZANTAC [Concomitant]
     Active Substance: RANITIDINE HYDROCHLORIDE
  25. DEXTROSE. [Concomitant]
     Active Substance: DEXTROSE
  26. CULTURELLE [Concomitant]
     Active Substance: LACTOBACILLUS RHAMNOSUS
  27. TOPROL XL [Concomitant]
     Active Substance: METOPROLOL SUCCINATE
  28. AXICABTAGENE CILOLEUCEL [Suspect]
     Active Substance: AXICABTAGENE CILOLEUCEL
     Indication: NON-HODGKIN^S LYMPHOMA
     Dosage: 68 ML
     Route: 042
     Dates: start: 20190614, end: 20190614
  29. WELLBUTRIN [Concomitant]
     Active Substance: BUPROPION HYDROCHLORIDE
     Dosage: UNK
  30. GLUCAGEN [GLUCAGON] [Concomitant]
  31. CLARITIN [Concomitant]
     Active Substance: LORATADINE
  32. POTASSIUM CHLORIDE. [Concomitant]
     Active Substance: POTASSIUM CHLORIDE
  33. LIPITOR [Concomitant]
     Active Substance: ATORVASTATIN CALCIUM
     Dosage: UNK
  34. TOPAMAX [Concomitant]
     Active Substance: TOPIRAMATE
     Dosage: 50 MG, BID
     Dates: end: 202002
  35. TOPAMAX [Concomitant]
     Active Substance: TOPIRAMATE
     Dosage: 25 MG, BID
     Dates: start: 202002
  36. ZYLOPRIM [Concomitant]
     Active Substance: ALLOPURINOL
  37. TUMS [Concomitant]
     Active Substance: CALCIUM CARBONATE
  38. CHANTIX [Concomitant]
     Active Substance: VARENICLINE TARTRATE
  39. EMLA [Concomitant]
     Active Substance: LIDOCAINE\PRILOCAINE
  40. PRILOSEC [Concomitant]
     Active Substance: OMEPRAZOLE MAGNESIUM
  41. SUCRALFATE. [Concomitant]
     Active Substance: SUCRALFATE
  42. FLEXERIL [Concomitant]
     Active Substance: CYCLOBENZAPRINE HYDROCHLORIDE
     Dosage: UNK
  43. HEPARIN [Concomitant]
     Active Substance: HEPARIN SODIUM
  44. LANTUS [Concomitant]
     Active Substance: INSULIN GLARGINE
  45. HUMALOG [Concomitant]
     Active Substance: INSULIN LISPRO
  46. ROXICODONE [Concomitant]
     Active Substance: OXYCODONE HYDROCHLORIDE
  47. CBD OIL [Concomitant]
     Active Substance: CANNABIDIOL\HERBALS
  48. COMPAZINE [Concomitant]
     Active Substance: PROCHLORPERAZINE MALEATE

REACTIONS (2)
  - Infection [Not Recovered/Not Resolved]
  - Sepsis [Recovering/Resolving]

NARRATIVE: CASE EVENT DATE: 20200202
